FAERS Safety Report 13554241 (Version 2)
Quarter: 2017Q2

REPORT INFORMATION
  Report Type: Spontaneous
  Country: BR (occurrence: BR)
  Receive Date: 20170517
  Receipt Date: 20170522
  Transmission Date: 20170830
  Serious: Yes (Other)
  Sender: FDA-Public Use
  Company Number: BR-TEVA-767884ROM

PATIENT
  Age: 82 Year
  Sex: Female
  Weight: 82 kg

DRUGS (1)
  1. ESTREVA [Suspect]
     Active Substance: ESTRADIOL
     Indication: MENOPAUSE
     Dosage: 1 PUMP PER DAY
     Route: 062
     Dates: start: 2012, end: 20170503

REACTIONS (8)
  - Therapeutic response unexpected [Recovered/Resolved]
  - Hypokalaemia [Not Recovered/Not Resolved]
  - Hypothyroidism [Not Recovered/Not Resolved]
  - Effusion [Recovered/Resolved]
  - Cardiac assistance device user [Recovered/Resolved]
  - Oedema peripheral [Recovered/Resolved]
  - Thyroid hormones decreased [Not Recovered/Not Resolved]
  - Inappropriate schedule of drug administration [Unknown]

NARRATIVE: CASE EVENT DATE: 2012
